FAERS Safety Report 15905866 (Version 1)
Quarter: 2019Q1

REPORT INFORMATION
  Report Type: Spontaneous
  Country: FR (occurrence: FR)
  Receive Date: 20190204
  Receipt Date: 20190204
  Transmission Date: 20190417
  Serious: Yes (Life-Threatening)
  Sender: FDA-Public Use
  Company Number: FR-ASTRAZENECA-2018SF62351

PATIENT
  Age: 25477 Day
  Sex: Male
  Weight: 70 kg

DRUGS (4)
  1. LOVENOX [Suspect]
     Active Substance: ENOXAPARIN SODIUM
     Indication: ACUTE MYOCARDIAL INFARCTION
     Dosage: 6000.0IU UNKNOWN
     Route: 065
     Dates: start: 20181001, end: 20181002
  2. BRILIQUE [Suspect]
     Active Substance: TICAGRELOR
     Indication: ACUTE MYOCARDIAL INFARCTION
     Route: 048
     Dates: start: 20181001, end: 20181002
  3. EUPANTOL [Concomitant]
     Active Substance: PANTOPRAZOLE SODIUM
     Indication: PROPHYLAXIS
     Dosage: 40.0MG UNKNOWN
     Dates: start: 20181001
  4. ASPEGIC (ACETYLSALICYLATE LYSINE, GLYCINE) [Concomitant]
     Active Substance: ASPIRIN DL-LYSINE\GLYCINE
     Indication: ACUTE MYOCARDIAL INFARCTION
     Dosage: 250.0MG ONCE/SINGLE ADMINISTRATION
     Dates: start: 20181001

REACTIONS (3)
  - Brain herniation [Unknown]
  - Subdural haematoma [Unknown]
  - Cerebral haemorrhage [Unknown]

NARRATIVE: CASE EVENT DATE: 201810
